FAERS Safety Report 8002451-5 (Version None)
Quarter: 2011Q4

REPORT INFORMATION
  Report Type: 
  Country: None (occurrence: None)
  Receive Date: 20111222
  Receipt Date: 20111214
  Transmission Date: 20120403
  Serious: No
  Sender: FDA-Public Use
  Company Number: US-BAYER-2011-121217

PATIENT
  Age: 60 Year
  Sex: Male

DRUGS (2)
  1. DIURETICS [Suspect]
  2. AVELOX [Suspect]
     Indication: INFECTION
     Dosage: 400 MG, QD
     Route: 048
     Dates: start: 20111210, end: 20111214

REACTIONS (6)
  - MUSCULOSKELETAL CHEST PAIN [None]
  - CONSTIPATION [None]
  - DYSPNOEA [None]
  - DISCOMFORT [None]
  - NAUSEA [None]
  - ABDOMINAL PAIN UPPER [None]
